APPROVED DRUG PRODUCT: PERCHLORACAP
Active Ingredient: POTASSIUM PERCHLORATE
Strength: 200MG
Dosage Form/Route: CAPSULE;ORAL
Application: N017551 | Product #001
Applicant: MALLINCKRODT MEDICAL INC
Approved: Approved Prior to Jan 1, 1982 | RLD: No | RS: No | Type: DISCN